FAERS Safety Report 20823918 (Version 1)
Quarter: 2022Q2

REPORT INFORMATION
  Report Type: Spontaneous
  Country: GB (occurrence: GB)
  Receive Date: 20220513
  Receipt Date: 20220513
  Transmission Date: 20220721
  Serious: Yes (Other)
  Sender: FDA-Public Use
  Company Number: GB-Shilpa Medicare Limited-SML-GB-2022-00512

PATIENT
  Age: 58 Year
  Sex: Female

DRUGS (4)
  1. GEMCITABINE [Suspect]
     Active Substance: GEMCITABINE
     Indication: Gallbladder cancer stage IV
     Dates: start: 201905
  2. GEMCITABINE [Suspect]
     Active Substance: GEMCITABINE
     Indication: Metastases to liver
  3. CISPLATIN [Suspect]
     Active Substance: CISPLATIN
     Indication: Gallbladder cancer stage IV
     Dates: start: 201905
  4. CISPLATIN [Suspect]
     Active Substance: CISPLATIN
     Indication: Metastases to liver

REACTIONS (2)
  - Disease progression [Unknown]
  - Drug ineffective [Unknown]
